FAERS Safety Report 4351762-3 (Version None)
Quarter: 2004Q2

REPORT INFORMATION
  Report Type: 
  Country: None (occurrence: None)
  Receive Date: 20040503
  Receipt Date: 20040420
  Transmission Date: 20050107
  Serious: Yes (Hospitalization)
  Sender: FDA-Public Use
  Company Number: HCM-0025

PATIENT
  Age: 75 Year
  Sex: Male

DRUGS (20)
  1. HYCAMTIN [Suspect]
     Dates: start: 20030902, end: 20031023
  2. AZULENE SULFONATE SODIUM L-GLUTAMINE [Concomitant]
     Dosage: 1.5G PER DAY
     Route: 048
     Dates: start: 20030814, end: 20040120
  3. REBAMIPIDE [Concomitant]
     Dosage: 300MG PER DAY
     Route: 048
     Dates: start: 20030814, end: 20040120
  4. MECOBALAMIN [Concomitant]
     Dosage: 1500MCG PER DAY
     Route: 048
     Dates: start: 20030814, end: 20040120
  5. LAFUTIDINE [Concomitant]
     Dosage: 20MG PER DAY
     Route: 048
     Dates: start: 20030814, end: 20040120
  6. POLLEN EXTRACT [Concomitant]
     Dosage: 252MG PER DAY
     Route: 048
     Dates: start: 20030814, end: 20040120
  7. AMLODIPINE BESYLATE [Concomitant]
     Dosage: 5MG PER DAY
     Route: 048
     Dates: start: 20030814, end: 20040120
  8. GLYBURIDE [Concomitant]
     Dosage: 1.25MG PER DAY
     Route: 048
     Dates: start: 20030814, end: 20040120
  9. KETOPROFEN [Concomitant]
     Route: 048
     Dates: start: 20030814, end: 20040120
  10. SENNA LEAF [Concomitant]
     Dosage: 1G PER DAY
     Route: 048
     Dates: start: 20030818, end: 20040120
  11. ZOPICLONE [Concomitant]
     Dosage: 7.5MG PER DAY
     Route: 048
     Dates: start: 20030826, end: 20040120
  12. DOMPERIDONE [Concomitant]
     Dosage: 30MG PER DAY
     Route: 048
     Dates: start: 20030822, end: 20040120
  13. FENTANYL [Concomitant]
     Route: 048
     Dates: start: 20030901, end: 20040120
  14. FLUTAMIDE [Concomitant]
     Dosage: 375MG PER DAY
     Route: 048
     Dates: start: 20030902, end: 20030916
  15. GRANISETRON HYDROCHLORIDE [Concomitant]
     Dosage: 3MG PER DAY
     Route: 042
     Dates: start: 20030902, end: 20030906
  16. AZASETRON HYDROCHLORIDE [Concomitant]
     Route: 042
     Dates: start: 20031008, end: 20031023
  17. LENOGRASTIM [Concomitant]
     Dosage: 100MCG PER DAY
     Route: 042
     Dates: start: 20030916, end: 20030919
  18. CEFEPIME DIHYDROCHLORIDE [Concomitant]
     Dosage: 2G PER DAY
     Route: 042
     Dates: start: 20030916, end: 20031020
  19. CARBOPLATIN [Concomitant]
     Route: 042
     Dates: start: 20031016, end: 20031023
  20. BERAPROST SODIUM [Concomitant]
     Dosage: 120MG PER DAY
     Dates: start: 20030814, end: 20040120

REACTIONS (18)
  - ALANINE AMINOTRANSFERASE INCREASED [None]
  - ASPARTATE AMINOTRANSFERASE INCREASED [None]
  - BLOOD ALKALINE PHOSPHATASE INCREASED [None]
  - BLOOD CALCIUM DECREASED [None]
  - BLOOD CHLORIDE DECREASED [None]
  - BLOOD LACTATE DEHYDROGENASE INCREASED [None]
  - BLOOD SODIUM DECREASED [None]
  - GAMMA-GLUTAMYLTRANSFERASE INCREASED [None]
  - GLUCOSE URINE PRESENT [None]
  - HAEMOGLOBIN DECREASED [None]
  - LYMPHOCYTE COUNT INCREASED [None]
  - NEUTROPHIL COUNT DECREASED [None]
  - PLATELET COUNT DECREASED [None]
  - PROTEIN TOTAL DECREASED [None]
  - PROTEIN URINE PRESENT [None]
  - RED BLOOD CELL COUNT DECREASED [None]
  - UROBILIN URINE PRESENT [None]
  - WHITE BLOOD CELL COUNT DECREASED [None]
